FAERS Safety Report 13766978 (Version 1)
Quarter: 2017Q3

REPORT INFORMATION
  Report Type: Spontaneous
  Country: None (occurrence: US)
  Receive Date: 20170719
  Receipt Date: 20170719
  Transmission Date: 20171127
  Serious: Yes (Hospitalization)
  Sender: FDA-Public Use
  Company Number: None

PATIENT
  Age: 10 Year
  Sex: Female
  Weight: 61.1 kg

DRUGS (4)
  1. MERCAPTOPURINE. [Suspect]
     Active Substance: MERCAPTOPURINE
     Dates: end: 20170704
  2. METHOTREXATE. [Suspect]
     Active Substance: METHOTREXATE
     Dates: end: 20170630
  3. PREDNISONE. [Suspect]
     Active Substance: PREDNISONE
     Dates: end: 20170419
  4. VINCRISTINE SULFATE. [Suspect]
     Active Substance: VINCRISTINE SULFATE
     Dates: end: 20170607

REACTIONS (5)
  - Vomiting [None]
  - Blood bilirubin increased [None]
  - Pancreatitis [None]
  - Abdominal pain [None]
  - Transaminases increased [None]

NARRATIVE: CASE EVENT DATE: 20170705
